FAERS Safety Report 4778001-3 (Version None)
Quarter: 2005Q3

REPORT INFORMATION
  Report Type: 
  Country: None (occurrence: None)
  Receive Date: 20050926
  Receipt Date: 20050913
  Transmission Date: 20060218
  Serious: Yes (Hospitalization, Other)
  Sender: FDA-Public Use
  Company Number: 2005SE05178

PATIENT
  Age: 23963 Day
  Sex: Female

DRUGS (13)
  1. NOLVADEX [Suspect]
     Indication: BREAST CANCER
     Route: 048
     Dates: start: 19980720, end: 20010510
  2. FRAGMIN [Concomitant]
  3. TRIOBEE [Concomitant]
  4. EVISTA [Concomitant]
  5. HEMINEVRIN [Concomitant]
  6. CITALOPRAM [Concomitant]
  7. ALVEDON [Concomitant]
  8. FRAGMIN [Concomitant]
  9. OXYCONTIN [Concomitant]
  10. OXYNORM [Concomitant]
  11. CITAMOX [Concomitant]
  12. TRIATEC [Concomitant]
  13. LAXOBERAL [Concomitant]

REACTIONS (1)
  - RADIUS FRACTURE [None]
